FAERS Safety Report 24459829 (Version 1)
Quarter: 2024Q4

REPORT INFORMATION
  Report Type: Spontaneous
  Country: US (occurrence: US)
  Receive Date: 20241018
  Receipt Date: 20241018
  Transmission Date: 20250114
  Serious: No
  Sender: ROCHE
  Company Number: US-ROCHE-3556970

PATIENT
  Sex: Male
  Weight: 77.11 kg

DRUGS (2)
  1. RITUXAN [Suspect]
     Active Substance: RITUXIMAB
     Indication: Muscle necrosis
     Dosage: FURTHER THERAPY TAKEN ON 08/FEB/2024
     Route: 065
     Dates: start: 20240125
  2. AZATHIOPRINE [Concomitant]
     Active Substance: AZATHIOPRINE
     Indication: Muscle necrosis

REACTIONS (2)
  - Off label use [Unknown]
  - No adverse event [Unknown]
